FAERS Safety Report 10672284 (Version 1)
Quarter: 2014Q4

REPORT INFORMATION
  Report Type: Spontaneous
  Country: US (occurrence: None)
  Receive Date: 20141222
  Receipt Date: 20141222
  Transmission Date: 20150529
  Serious: Yes (Other)
  Sender: FDA-Public Use
  Company Number: None

PATIENT
  Age: 67 Year
  Sex: Male
  Weight: 95.26 kg

DRUGS (1)
  1. BREO ELLIPTA [Suspect]
     Active Substance: FLUTICASONE FUROATE\VILANTEROL TRIFENATATE
     Indication: THERAPY CESSATION
     Route: 055
     Dates: start: 20141115, end: 20141125

REACTIONS (4)
  - Balance disorder [None]
  - Chest discomfort [None]
  - Skin discolouration [None]
  - Duodenogastric reflux [None]

NARRATIVE: CASE EVENT DATE: 20141201
